FAERS Safety Report 24048973 (Version 9)
Quarter: 2024Q4

REPORT INFORMATION
  Report Type: Report from Study
  Country: CA (occurrence: CA)
  Receive Date: 20240704
  Receipt Date: 20241108
  Transmission Date: 20250115
  Serious: Yes (Hospitalization)
  Sender: JOHNSON AND JOHNSON
  Company Number: CA-JNJFOC-20240511101

PATIENT
  Age: 29 Year
  Sex: Female
  Weight: 42.222 kg

DRUGS (10)
  1. SIMPONI [Suspect]
     Active Substance: GOLIMUMAB
     Indication: Colitis ulcerative
     Route: 041
     Dates: start: 20240502
  2. SIMPONI [Suspect]
     Active Substance: GOLIMUMAB
     Route: 041
  3. SIMPONI [Suspect]
     Active Substance: GOLIMUMAB
     Route: 041
  4. SIMPONI [Suspect]
     Active Substance: GOLIMUMAB
     Route: 058
  5. SIMPONI [Suspect]
     Active Substance: GOLIMUMAB
     Indication: Colitis ulcerative
     Route: 058
  6. SIMPONI [Suspect]
     Active Substance: GOLIMUMAB
     Route: 058
     Dates: start: 20240516
  7. SIMPONI [Suspect]
     Active Substance: GOLIMUMAB
     Route: 058
  8. SIMPONI [Suspect]
     Active Substance: GOLIMUMAB
     Route: 058
  9. SIMPONI [Suspect]
     Active Substance: GOLIMUMAB
     Route: 058
  10. BUDESONIDE [Concomitant]
     Active Substance: BUDESONIDE

REACTIONS (7)
  - Clostridium difficile infection [Not Recovered/Not Resolved]
  - Colitis ulcerative [Not Recovered/Not Resolved]
  - Contusion [Not Recovered/Not Resolved]
  - Rash [Not Recovered/Not Resolved]
  - Pouchitis [Not Recovered/Not Resolved]
  - Haemoglobin decreased [Not Recovered/Not Resolved]
  - Off label use [Unknown]

NARRATIVE: CASE EVENT DATE: 20240601
